FAERS Safety Report 7982361-X (Version None)
Quarter: 2011Q4

REPORT INFORMATION
  Report Type: 
  Country: None (occurrence: None)
  Receive Date: 20111215
  Receipt Date: 20111205
  Transmission Date: 20120403
  Serious: Yes (Death)
  Sender: FDA-Public Use
  Company Number: PHHY2011US108066

PATIENT
  Age: 10 Year
  Sex: Male

DRUGS (10)
  1. VALPROIC ACID [Suspect]
  2. LORATADINE [Suspect]
  3. RISPERIDONE [Suspect]
  4. ALPRAZOLAM [Suspect]
  5. QUETIAPINE [Suspect]
  6. CLONAZEPAM [Suspect]
  7. LORAZEPAM [Suspect]
  8. METHYLPHENIDATE [Suspect]
     Route: 048
  9. OMEPRAZOLE [Suspect]
  10. ATOMOXETINE HYDROCHLORIDE [Suspect]

REACTIONS (1)
  - TOXICITY TO VARIOUS AGENTS [None]
